FAERS Safety Report 19140089 (Version 1)
Quarter: 2021Q2

REPORT INFORMATION
  Report Type: Spontaneous
  Country: DE (occurrence: DE)
  Receive Date: 20210415
  Receipt Date: 20210415
  Transmission Date: 20210717
  Serious: Yes (Other)
  Sender: FDA-Public Use
  Company Number: DE-ROCHE-2809645

PATIENT
  Age: 62 Year
  Sex: Female

DRUGS (5)
  1. BEOVU [Suspect]
     Active Substance: BROLUCIZUMAB-DBLL
     Dosage: UNK (SHORTENING OF INJECTION INTERVALS FROM 12 WEEKS TO 10 WEEKS)
     Route: 050
  2. BEOVU [Suspect]
     Active Substance: BROLUCIZUMAB-DBLL
     Dosage: UNK (SHORTENING OF INJECTION INTERVALS FROM 12 WEEKS TO 10 WEEKS)
     Route: 050
  3. LUCENTIS [Suspect]
     Active Substance: RANIBIZUMAB
     Indication: NEOVASCULAR AGE-RELATED MACULAR DEGENERATION
     Dosage: UNK UNK, Q5W (FOUR TIMES IN TIME INTERVALS OF FIVE WEEKS)
     Route: 050
  4. BEOVU [Suspect]
     Active Substance: BROLUCIZUMAB-DBLL
     Indication: NEOVASCULAR AGE-RELATED MACULAR DEGENERATION
     Dosage: UNK (SHORTENING OF INJECTION INTERVALS FROM 12 WEEKS TO 10 WEEKS)
     Route: 050
  5. BEOVU [Suspect]
     Active Substance: BROLUCIZUMAB-DBLL
     Dosage: UNK (SHORTENING OF INJECTION INTERVALS FROM 12 WEEKS TO 10 WEEKS)
     Route: 050

REACTIONS (3)
  - Visual acuity reduced [Unknown]
  - Subretinal fluid [Recovered/Resolved]
  - Drug ineffective [Unknown]
